FAERS Safety Report 7293404-3 (Version None)
Quarter: 2011Q1

REPORT INFORMATION
  Report Type: 
  Country: None (occurrence: None)
  Receive Date: 20110215
  Receipt Date: 20110207
  Transmission Date: 20110831
  Serious: Yes (Death)
  Sender: FDA-Public Use
  Company Number: US-WATSON-2011-01663

PATIENT
  Age: 21 Month
  Sex: Male

DRUGS (1)
  1. CYCLOPHOSPHAMIDE [Suspect]
     Indication: PROPHYLAXIS AGAINST TRANSPLANT REJECTION
     Dosage: UNK

REACTIONS (3)
  - PULMONARY ARTERIAL HYPERTENSION [None]
  - PULMONARY TOXICITY [None]
  - ACUTE RESPIRATORY DISTRESS SYNDROME [None]
